FAERS Safety Report 4367187-0 (Version None)
Quarter: 2004Q2

REPORT INFORMATION
  Report Type: 
  Country: None (occurrence: None)
  Receive Date: 20040528
  Receipt Date: 20040307
  Transmission Date: 20050107
  Serious: Yes (Other)
  Sender: FDA-Public Use
  Company Number: PHEH2004US02765

PATIENT
  Age: 65 Year
  Sex: Male
  Weight: 119 kg

DRUGS (1)
  1. GLEEVEC [Suspect]
     Indication: CHRONIC MYELOID LEUKAEMIA
     Dosage: 400 MG, QD
     Route: 048
     Dates: start: 20020806, end: 20040301

REACTIONS (3)
  - BONE PAIN [None]
  - IMPAIRED HEALING [None]
  - PATHOLOGICAL FRACTURE [None]
